FAERS Safety Report 7106222-3 (Version None)
Quarter: 2010Q4

REPORT INFORMATION
  Report Type: 
  Country: None (occurrence: None)
  Receive Date: 20101116
  Receipt Date: 20101108
  Transmission Date: 20110411
  Serious: Yes (Other)
  Sender: FDA-Public Use
  Company Number: US-PURDUE-USA-2010-0053491

PATIENT
  Sex: Male

DRUGS (2)
  1. OXYCONTIN [Suspect]
     Indication: PAIN
     Dosage: 160 MG, TID
     Route: 048
     Dates: start: 20101101
  2. OXYCODONE HCL [Suspect]
     Indication: PAIN
     Dosage: 10 MG, UNK

REACTIONS (8)
  - DRUG EFFECT DECREASED [None]
  - DRUG INEFFECTIVE [None]
  - INSOMNIA [None]
  - PAIN [None]
  - PRURITUS [None]
  - RASH MACULAR [None]
  - SUICIDAL IDEATION [None]
  - URTICARIA [None]
